FAERS Safety Report 5410836-6 (Version None)
Quarter: 2007Q3

REPORT INFORMATION
  Report Type: 
  Country: None (occurrence: None)
  Receive Date: 20070810
  Receipt Date: 20070806
  Transmission Date: 20080115
  Serious: Yes (Other)
  Sender: FDA-Public Use
  Company Number: PHBS2007IT13189

PATIENT
  Age: 36 Year
  Sex: Female

DRUGS (9)
  1. AMPHOTERICIN B [Concomitant]
  2. ZIDOVUDINE [Concomitant]
  3. DIDANOSINE [Concomitant]
  4. SAQUINAVIR [Concomitant]
  5. LAMIVUDINE [Concomitant]
  6. LOPINAVIR W/RITONAVIR [Concomitant]
  7. STAVUDINE [Concomitant]
  8. RITONAVIR-BOOSTED AMPRENAVIR [Concomitant]
  9. PROLEUKIN [Suspect]
     Indication: VISCERAL LEISHMANIASIS
     Route: 058
     Dates: start: 20010701

REACTIONS (4)
  - CD4 LYMPHOCYTES DECREASED [None]
  - HIV INFECTION [None]
  - PARASITE DNA TEST POSITIVE [None]
  - VISCERAL LEISHMANIASIS [None]
